FAERS Safety Report 26076426 (Version 1)
Quarter: 2025Q4

REPORT INFORMATION
  Report Type: Spontaneous
  Country: US (occurrence: US)
  Receive Date: 20251121
  Receipt Date: 20251121
  Transmission Date: 20260118
  Serious: Yes (Disabling, Other)
  Sender: NOVO NORDISK
  Company Number: US-NOVOPROD-1553982

PATIENT
  Sex: Male

DRUGS (1)
  1. VICTOZA [Suspect]
     Active Substance: LIRAGLUTIDE
     Indication: Product used for unknown indication
     Dosage: EVERY DAY OF THE WEEK
     Dates: start: 2013

REACTIONS (3)
  - Blindness unilateral [Unknown]
  - Retinal detachment [Unknown]
  - Eye disorder [Unknown]
